FAERS Safety Report 9913156 (Version 1)
Quarter: 2014Q1

REPORT INFORMATION
  Report Type: Spontaneous
  Country: US (occurrence: None)
  Receive Date: 20140214
  Receipt Date: 20140214
  Transmission Date: 20141002
  Serious: Yes (Hospitalization)
  Sender: FDA-Public Use
  Company Number: US-014657

PATIENT
  Age: 64 Year
  Sex: Male
  Weight: 73.48 kg

DRUGS (5)
  1. FIRMAGON [Suspect]
     Indication: PROSTATE CANCER
     Dosage: 80 MG 1X/MONTH SUBCUTANEOUS
     Route: 058
     Dates: start: 201304
  2. AVODART [Concomitant]
  3. XGEVA [Concomitant]
  4. VIVELLE-DOT [Concomitant]
  5. METFORMIN [Concomitant]

REACTIONS (6)
  - Eye swelling [None]
  - Skin swelling [None]
  - Injection site pain [None]
  - Injection site erythema [None]
  - Injection site swelling [None]
  - Back pain [None]
